FAERS Safety Report 25789474 (Version 1)
Quarter: 2025Q3

REPORT INFORMATION
  Report Type: Report from Study
  Country: US (occurrence: US)
  Receive Date: 20250911
  Receipt Date: 20250911
  Transmission Date: 20251021
  Serious: No
  Sender: ACADIA PHARMACEUTICALS
  Company Number: US-ACADIA PHARMACEUTICALS INC.-ACA-2025-PIM-009998

PATIENT
  Age: 79 Year
  Sex: Male

DRUGS (11)
  1. NUPLAZID [Suspect]
     Active Substance: PIMAVANSERIN TARTRATE
     Indication: Parkinson^s disease psychosis
     Dosage: 34 MILLIGRAM, QD
     Dates: start: 20240906
  2. LISINOPRIL [Concomitant]
     Active Substance: LISINOPRIL
  3. DONEPEZIL [Concomitant]
     Active Substance: DONEPEZIL
  4. CARBIDOPA\LEVODOPA [Concomitant]
     Active Substance: CARBIDOPA\LEVODOPA
  5. AMANTADINE [Concomitant]
     Active Substance: AMANTADINE
  6. VITAMINS NOS [Concomitant]
     Active Substance: VITAMINS
  7. VITAMIN D3 [Concomitant]
     Active Substance: CHOLECALCIFEROL
  8. ROPINIROLE [Concomitant]
     Active Substance: ROPINIROLE
  9. SELEGILINE [Concomitant]
     Active Substance: SELEGILINE
  10. VITAMIN B12 [Concomitant]
     Active Substance: CYANOCOBALAMIN
  11. NAPROXEN [Concomitant]
     Active Substance: NAPROXEN

REACTIONS (1)
  - Drug ineffective [Unknown]

NARRATIVE: CASE EVENT DATE: 20250905
